FAERS Safety Report 10786430 (Version 4)
Quarter: 2015Q2

REPORT INFORMATION
  Report Type: Report from Study
  Country: DE (occurrence: DE)
  Receive Date: 20150211
  Receipt Date: 20150416
  Transmission Date: 20150821
  Serious: Yes (Hospitalization)
  Sender: FDA-Public Use
  Company Number: DE-ASTRAZENECA-2015SE11106

PATIENT
  Age: 70 Year
  Sex: Male

DRUGS (17)
  1. CATAPRESAN [Concomitant]
     Active Substance: CLONIDINE
     Dosage: AS NEEDED
     Route: 042
  2. NEPRESOL [Concomitant]
     Active Substance: DIHYDRALAZINE SULFATE
     Dosage: AS NEEDED
     Route: 042
  3. DELIX [Concomitant]
     Active Substance: RAMIPRIL
     Route: 065
  4. ACETYLSALICYLIC ACID [Suspect]
     Active Substance: ASPIRIN
     Indication: THROMBOSIS PROPHYLAXIS
     Dosage: MAINTENANCE THERAPY
     Route: 048
     Dates: start: 20150107, end: 20150117
  5. TICAGRELOR [Suspect]
     Active Substance: TICAGRELOR
     Indication: THROMBOSIS PROPHYLAXIS
     Route: 048
     Dates: start: 20150107, end: 20150117
  6. KALINOR BRAUSE [Concomitant]
     Dosage: AS NEEDED
  7. PROPUFOL [Concomitant]
     Dosage: AS NEEDED
     Route: 042
  8. BETABION [Concomitant]
     Dates: start: 20150107
  9. CLOPIDOGREL [Suspect]
     Active Substance: CLOPIDOGREL BISULFATE
     Indication: THROMBOSIS PROPHYLAXIS
     Route: 048
     Dates: start: 20150117
  10. ATORVASTATIN [Concomitant]
     Active Substance: ATORVASTATIN
     Indication: ACUTE MYOCARDIAL INFARCTION
     Dates: start: 20150106
  11. EBRANTIL [Concomitant]
     Active Substance: URAPIDIL
     Route: 042
  12. METOPROLOL [Concomitant]
     Active Substance: METOPROLOL
     Indication: ACUTE MYOCARDIAL INFARCTION
     Dates: start: 20150107
  13. PANTOPRAZOLE SODIUM. [Concomitant]
     Active Substance: PANTOPRAZOLE SODIUM
     Indication: PROPHYLAXIS AGAINST GASTROINTESTINAL ULCER
     Dates: start: 20150107
  14. SALBUTAMOL [Concomitant]
     Active Substance: ALBUTEROL
     Indication: CHRONIC OBSTRUCTIVE PULMONARY DISEASE
     Dosage: 3-4 ML
     Dates: start: 20150106
  15. ERYTHROMYCIN. [Concomitant]
     Active Substance: ERYTHROMYCIN
     Route: 042
  16. KONAGION [Concomitant]
  17. IPRATROPIUM [Concomitant]
     Active Substance: IPRATROPIUM
     Indication: CHRONIC OBSTRUCTIVE PULMONARY DISEASE
     Dosage: 3-4 ML
     Dates: start: 20150106

REACTIONS (3)
  - Gastrointestinal haemorrhage [Recovered/Resolved]
  - Subarachnoid haemorrhage [Recovered/Resolved]
  - Mallory-Weiss syndrome [Recovered/Resolved]

NARRATIVE: CASE EVENT DATE: 20150117
